FAERS Safety Report 23391214 (Version 2)
Quarter: 2024Q2

REPORT INFORMATION
  Report Type: Spontaneous
  Country: AU (occurrence: AU)
  Receive Date: 20240111
  Receipt Date: 20240507
  Transmission Date: 20240716
  Serious: Yes (Hospitalization, Other)
  Sender: FDA-Public Use
  Company Number: AU-MYLANLABS-2024M1003027

PATIENT
  Age: 57 Year
  Sex: Male

DRUGS (3)
  1. CLOZARIL [Suspect]
     Active Substance: CLOZAPINE
     Indication: Schizophrenia
     Dosage: 250 MILLIGRAM
     Route: 048
     Dates: start: 20200907, end: 20240422
  2. CLOZARIL [Suspect]
     Active Substance: CLOZAPINE
     Dosage: 300 MILLIGRAM
     Route: 048
     Dates: start: 20200907, end: 20240422
  3. CLOZARIL [Suspect]
     Active Substance: CLOZAPINE
     Dosage: UNK
     Route: 065
     Dates: start: 20240426

REACTIONS (4)
  - Cellulitis [Unknown]
  - Malaise [Unknown]
  - Leukocytosis [Unknown]
  - Neutrophilia [Unknown]

NARRATIVE: CASE EVENT DATE: 20240422
